FAERS Safety Report 4631915-7 (Version None)
Quarter: 2005Q2

REPORT INFORMATION
  Report Type: 
  Country: None (occurrence: None)
  Receive Date: 20050411
  Receipt Date: 20050309
  Transmission Date: 20051028
  Serious: Yes (Hospitalization, Other)
  Sender: FDA-Public Use
  Company Number: FR-ABBOTT-05P-056-0293838-00

PATIENT
  Age: 48 Year
  Sex: Male

DRUGS (2)
  1. HUMIRA [Suspect]
     Indication: RHEUMATOID ARTHRITIS
     Route: 058
     Dates: start: 20031121, end: 20041020
  2. CORTICOSTEROIDS [Concomitant]
     Indication: RHEUMATOID ARTHRITIS
     Dates: start: 20031101

REACTIONS (8)
  - ASTHENIA [None]
  - HYPERTHERMIA [None]
  - HYPOTONIA [None]
  - HYPOXIA [None]
  - LEGIONELLA INFECTION [None]
  - PNEUMONIA [None]
  - PNEUMONIA LEGIONELLA [None]
  - PNEUMOTHORAX [None]
